FAERS Safety Report 4424348-X (Version None)
Quarter: 2004Q3

REPORT INFORMATION
  Report Type: 
  Country: None (occurrence: None)
  Receive Date: 20040810
  Receipt Date: 20040810
  Transmission Date: 20050211
  Serious: Yes (Hospitalization, Disabling)
  Sender: FDA-Public Use
  Company Number: None

PATIENT
  Age: 29 Year
  Sex: Male
  Weight: 97.5234 kg

DRUGS (1)
  1. PREDNISONE [Suspect]
     Dosage: 60 MG DAILY ORAL
     Route: 048
     Dates: start: 19960824, end: 19961224

REACTIONS (1)
  - ASEPTIC NECROSIS BONE [None]
